FAERS Safety Report 8500038-9 (Version None)
Quarter: 2012Q3

REPORT INFORMATION
  Report Type: 
  Country: None (occurrence: None)
  Receive Date: 20120703
  Receipt Date: 20120703
  Transmission Date: 20120928
  Serious: Yes (Life-Threatening, Disabling)
  Sender: FDA-Public Use
  Company Number: None

PATIENT
  Age: 34 Year
  Sex: Female
  Weight: 100.6985 kg

DRUGS (1)
  1. LUTERA BIRTH CONTROL WATSON NDC 52544-949-28 [Suspect]
     Indication: MENSTRUAL DISORDER
     Dosage: 1 PILL ONCE A DAY
     Dates: start: 20120301, end: 20120401

REACTIONS (2)
  - DEEP VEIN THROMBOSIS [None]
  - PAIN [None]
